FAERS Safety Report 9431147 (Version 2)
Quarter: 2014Q1

REPORT INFORMATION
  Report Type: Spontaneous
  Country: US (occurrence: US)
  Receive Date: 20130730
  Receipt Date: 20140321
  Transmission Date: 20141002
  Serious: Yes (Hospitalization, Other)
  Sender: FDA-Public Use
  Company Number: US-ROCHE-1076219

PATIENT
  Age: 19 Year
  Sex: Male

DRUGS (1)
  1. ACCUTANE [Suspect]
     Indication: ACNE
     Route: 065
     Dates: start: 199212, end: 199306

REACTIONS (13)
  - Colitis ulcerative [Unknown]
  - Pouchitis [Unknown]
  - Anxiety [Unknown]
  - Herpes zoster [Unknown]
  - Inguinal hernia [Unknown]
  - Onychomycosis [Unknown]
  - Hypovitaminosis [Unknown]
  - Nephrolithiasis [Unknown]
  - Inflammatory bowel disease [Unknown]
  - Intestinal haemorrhage [Unknown]
  - Intestinal obstruction [Unknown]
  - Depression [Unknown]
  - Tonsillitis [Unknown]
